FAERS Safety Report 4721733-3 (Version None)
Quarter: 2005Q3

REPORT INFORMATION
  Report Type: 
  Country: None (occurrence: None)
  Receive Date: 20050721
  Receipt Date: 20050321
  Transmission Date: 20060218
  Serious: Yes (Other)
  Sender: FDA-Public Use
  Company Number: US-BRISTOL-MYERS SQUIBB COMPANY-12905469

PATIENT
  Age: 75 Year
  Sex: Female

DRUGS (3)
  1. COUMADIN [Suspect]
     Indication: MITRAL VALVE REPLACEMENT
     Dosage: 7.5 MG ONCE DAILY X 6 DAYS, 5 MG ONCE DAILY X 1 DAY PER WEEK
     Route: 048
  2. REGLAN [Concomitant]
  3. PERPHENAZINE AND AMITRIPTYLINE HCL [Concomitant]

REACTIONS (2)
  - DRUG EFFECT DECREASED [None]
  - INTERNATIONAL NORMALISED RATIO DECREASED [None]
